FAERS Safety Report 10983104 (Version 1)
Quarter: 2015Q2

REPORT INFORMATION
  Report Type: Spontaneous
  Country: US (occurrence: None)
  Receive Date: 20150402
  Receipt Date: 20150402
  Transmission Date: 20150821
  Serious: Yes (Life-Threatening, Hospitalization)
  Sender: FDA-Public Use
  Company Number: None

PATIENT
  Age: 68 Year
  Sex: Male
  Weight: 95 kg

DRUGS (11)
  1. WARFARIN 2.5 MG [Suspect]
     Active Substance: WARFARIN
     Indication: PULMONARY EMBOLISM
     Dosage: 1 TABLET, QD, ORAL
     Route: 048
  2. FLOMAX [Concomitant]
     Active Substance: TAMSULOSIN HYDROCHLORIDE
  3. BISOPROLOL-HYDROCHLOROTHIAZIDE (ZIAC) [Concomitant]
  4. COENZYME Q10 (CO Q-10) [Concomitant]
  5. VITAMIN E [Concomitant]
     Active Substance: .ALPHA.-TOCOPHEROL
  6. AMANTADINE (SYMMETREL) [Concomitant]
  7. ASPIRIN. [Concomitant]
     Active Substance: ASPIRIN
  8. VITAMIN B [Concomitant]
     Active Substance: VITAMIN B
  9. OMEPRAZOLE (PRILOSEC) [Concomitant]
  10. LOSARTAN (COZAAR) [Concomitant]
  11. SIMVASTATIN (ZOCOR) [Concomitant]

REACTIONS (8)
  - Head injury [None]
  - Local swelling [None]
  - Dizziness [None]
  - Epidural haemorrhage [None]
  - Subdural haemorrhage [None]
  - Hunger [None]
  - Fall [None]
  - Blood glucose decreased [None]

NARRATIVE: CASE EVENT DATE: 20141126
